FAERS Safety Report 20821038 (Version 1)
Quarter: 2022Q2

REPORT INFORMATION
  Report Type: Report from Study
  Country: BR (occurrence: BR)
  Receive Date: 20220512
  Receipt Date: 20220512
  Transmission Date: 20220720
  Serious: Yes (Death, Other)
  Sender: FDA-Public Use
  Company Number: BR-JNJFOC-20220516313

PATIENT
  Age: 8 Decade
  Sex: Female
  Weight: 100 kg

DRUGS (1)
  1. INFLIXIMAB [Suspect]
     Active Substance: INFLIXIMAB
     Indication: Rheumatoid arthritis
     Route: 042
     Dates: start: 2019

REACTIONS (2)
  - Death [Fatal]
  - Erysipelas [Unknown]

NARRATIVE: CASE EVENT DATE: 20210201
